FAERS Safety Report 21697987 (Version 2)
Quarter: 2022Q4

REPORT INFORMATION
  Report Type: Report from Study
  Country: US (occurrence: US)
  Receive Date: 20221208
  Receipt Date: 20221209
  Transmission Date: 20230112
  Serious: Yes (Other)
  Sender: FDA-Public Use
  Company Number: US-AMGEN-USACT2022210712

PATIENT
  Age: 52 Year
  Sex: Female
  Weight: 62.1 kg

DRUGS (1)
  1. TALIMOGENE LAHERPAREPVEC [Suspect]
     Active Substance: TALIMOGENE LAHERPAREPVEC
     Indication: Soft tissue sarcoma
     Dosage: UNK
     Route: 036
     Dates: start: 20220921

REACTIONS (1)
  - Radiation skin injury [Recovering/Resolving]

NARRATIVE: CASE EVENT DATE: 20221029
